FAERS Safety Report 24416116 (Version 4)
Quarter: 2025Q2

REPORT INFORMATION
  Report Type: Spontaneous
  Country: PL (occurrence: PL)
  Receive Date: 20241009
  Receipt Date: 20250522
  Transmission Date: 20250716
  Serious: Yes (Hospitalization, Other)
  Sender: AUROBINDO
  Company Number: PL-Orion Corporation ORION PHARMA-LERC2024-0002

PATIENT
  Age: 68 Year
  Sex: Male

DRUGS (12)
  1. ATORVASTATIN [Suspect]
     Active Substance: ATORVASTATIN
     Indication: Product used for unknown indication
     Route: 065
  2. ASPIRIN [Suspect]
     Active Substance: ASPIRIN
     Indication: Product used for unknown indication
     Route: 065
  3. EMPAGLIFLOZIN [Suspect]
     Active Substance: EMPAGLIFLOZIN
     Indication: Product used for unknown indication
     Route: 065
  4. INDAPAMIDE [Suspect]
     Active Substance: INDAPAMIDE
     Indication: Hypertension
     Route: 065
  5. LERCANIDIPINE [Suspect]
     Active Substance: LERCANIDIPINE
     Indication: Product used for unknown indication
     Route: 065
  6. METFORMIN [Suspect]
     Active Substance: METFORMIN HYDROCHLORIDE
     Indication: Product used for unknown indication
     Dosage: 750 MILLIGRAM, ONCE A DAY (PROLONGED RELEASE, IN THE EVENING)
     Route: 065
  7. SEMAGLUTIDE [Suspect]
     Active Substance: SEMAGLUTIDE
     Indication: Product used for unknown indication
     Dosage: 1 MILLIGRAM, EVERY WEEK
     Route: 058
  8. SPIRONOLACTONE [Suspect]
     Active Substance: SPIRONOLACTONE
     Indication: Hypertension
     Route: 065
  9. CLONIDINE [Suspect]
     Active Substance: CLONIDINE
     Indication: Hypertension
     Dosage: 150 MICROGRAM, ONCE A DAY (75 MICROGRAM, BID (2 ? 75 ?G)
     Route: 065
  10. CLONIDINE [Suspect]
     Active Substance: CLONIDINE
     Dosage: 300 MICROGRAM, ONCE A DAY (150 MICROGRAM, BID (INCREASE THE DOSE TO 2X 150 ?G AFTER 3 DAYS)
     Route: 065
  11. BISOPROLOL [Suspect]
     Active Substance: BISOPROLOL
     Indication: Hypertension
     Dosage: UNK, ONCE A DAY (10/10 MILLIGRAM, QD IN THE MORNING)
     Route: 065
  12. RAMIPRIL [Suspect]
     Active Substance: RAMIPRIL

REACTIONS (5)
  - Hypertension [Recovering/Resolving]
  - Therapeutic response decreased [Recovering/Resolving]
  - Hyperkalaemia [Unknown]
  - Drug ineffective [Recovered/Resolved]
  - Oedema peripheral [Unknown]
